FAERS Safety Report 10441747 (Version 2)
Quarter: 2014Q4

REPORT INFORMATION
  Report Type: Spontaneous
  Country: UY (occurrence: UY)
  Receive Date: 20140908
  Receipt Date: 20141003
  Transmission Date: 20150528
  Serious: Yes (Hospitalization, Other)
  Sender: FDA-Public Use
  Company Number: UY-PFIZER INC-2014247542

PATIENT
  Age: 50 Year
  Sex: Female
  Weight: 70 kg

DRUGS (1)
  1. LYRICA [Suspect]
     Active Substance: PREGABALIN
     Indication: PERIODIC LIMB MOVEMENT DISORDER
     Dosage: 75 MG, DAILY
     Dates: start: 201401

REACTIONS (2)
  - Cardiac arrest [Recovered/Resolved]
  - Ventricular fibrillation [Recovered/Resolved]

NARRATIVE: CASE EVENT DATE: 20140715
